FAERS Safety Report 8263992-9 (Version None)
Quarter: 2012Q2

REPORT INFORMATION
  Report Type: 
  Country: None (occurrence: None)
  Receive Date: 20120406
  Receipt Date: 20091105
  Transmission Date: 20120825
  Serious: No
  Sender: FDA-Public Use
  Company Number: 2009BI036039

PATIENT
  Sex: Female

DRUGS (1)
  1. TYSABRI [Suspect]
     Indication: MULTIPLE SCLEROSIS
     Route: 042
     Dates: end: 20111201

REACTIONS (8)
  - DRY THROAT [None]
  - CARDIAC DISORDER [None]
  - PRURITUS GENERALISED [None]
  - MALAISE [None]
  - ANXIETY [None]
  - NASOPHARYNGITIS [None]
  - THROAT IRRITATION [None]
  - MULTIPLE SCLEROSIS RELAPSE [None]
